FAERS Safety Report 15939335 (Version 1)
Quarter: 2019Q1

REPORT INFORMATION
  Report Type: Spontaneous
  Country: JP (occurrence: JP)
  Receive Date: 20190208
  Receipt Date: 20190208
  Transmission Date: 20190417
  Serious: Yes (Other)
  Sender: FDA-Public Use
  Company Number: JP-ASTELLAS-2019JP001904AA

PATIENT
  Sex: Male

DRUGS (2)
  1. FUNGUARD [Suspect]
     Active Substance: MICAFUNGIN SODIUM
     Indication: ASPERGILLUS INFECTION
     Route: 041
     Dates: start: 20181130
  2. FUNGUARD [Suspect]
     Active Substance: MICAFUNGIN SODIUM
     Dosage: 150 MG/DAY, UNKNOWN FREQ.
     Route: 041
     Dates: start: 20181201, end: 20190104

REACTIONS (3)
  - Proctalgia [Unknown]
  - Rectal tenesmus [Unknown]
  - Lung infiltration [Unknown]

NARRATIVE: CASE EVENT DATE: 20181201
